FAERS Safety Report 8602038 (Version 3)
Quarter: 2013Q4

REPORT INFORMATION
  Report Type: Spontaneous
  Country: US (occurrence: US)
  Receive Date: 20120607
  Receipt Date: 20131017
  Transmission Date: 20140711
  Serious: No
  Sender: FDA-Public Use
  Company Number: US-ASTRAZENECA-2012SE36182

PATIENT
  Age: 54 Year
  Sex: Male

DRUGS (12)
  1. NEXIUM [Suspect]
     Indication: GASTROOESOPHAGEAL REFLUX DISEASE
     Route: 048
  2. NEXIUM [Suspect]
     Indication: GASTROOESOPHAGEAL REFLUX DISEASE
     Route: 048
     Dates: start: 2001
  3. TUMS [Concomitant]
     Dosage: AS NEEDED
  4. PEPTO-BISMOL [Concomitant]
     Dosage: AS NEEDED
  5. DIOVAN [Concomitant]
     Indication: HYPERTENSION
  6. LIPITOR [Concomitant]
     Indication: BLOOD CHOLESTEROL ABNORMAL
  7. NORVASC [Concomitant]
     Indication: BLOOD CHOLESTEROL ABNORMAL
  8. ADVAIR [Concomitant]
     Indication: ASTHMA
  9. VENTOLIN/ ALBUTEROL [Concomitant]
     Indication: ASTHMA
  10. SINGULAR [Concomitant]
     Indication: ASTHMA
  11. METFORMIN [Concomitant]
     Indication: ASTHMA
  12. PROZAC [Concomitant]
     Indication: ANXIETY

REACTIONS (6)
  - Osteoporosis [Unknown]
  - Bone density decreased [Unknown]
  - Ankle fracture [Unknown]
  - Bone disorder [Unknown]
  - Arthritis [Unknown]
  - Rheumatoid arthritis [Unknown]
